FAERS Safety Report 11877957 (Version 2)
Quarter: 2016Q1

REPORT INFORMATION
  Report Type: Spontaneous
  Country: JP (occurrence: JP)
  Receive Date: 20151230
  Receipt Date: 20160316
  Transmission Date: 20160526
  Serious: Yes (Other)
  Sender: FDA-Public Use
  Company Number: JP-BRISTOL-MYERS SQUIBB COMPANY-BMS-2015-090540

PATIENT
  Age: 65 Year
  Sex: Male

DRUGS (6)
  1. CALONAL [Concomitant]
     Active Substance: ACETAMINOPHEN
     Indication: PRODUCT USED FOR UNKNOWN INDICATION
     Dosage: 400 MG, UNK
     Route: 048
     Dates: start: 20150415, end: 20150429
  2. MILMAG [Concomitant]
     Active Substance: MAGNESIUM HYDROXIDE
     Indication: PRODUCT USED FOR UNKNOWN INDICATION
     Route: 048
     Dates: start: 20150415, end: 20150429
  3. CHLORPHENIRAMINE MALEATE. [Concomitant]
     Active Substance: CHLORPHENIRAMINE MALEATE
     Indication: PREMEDICATION
     Dosage: 10 MG, WEEKLY (1/W)
     Dates: start: 20150311, end: 20150507
  4. ERBITUX [Suspect]
     Active Substance: CETUXIMAB
     Indication: HYPOPHARYNGEAL CANCER
     Dosage: 400 MG/M2, UNKNOWN
     Route: 042
     Dates: start: 20150311, end: 20150507
  5. MINOMYCIN [Concomitant]
     Active Substance: MINOCYCLINE HYDROCHLORIDE
     Indication: PRODUCT USED FOR UNKNOWN INDICATION
     Dosage: 200 MG, QD
     Route: 048
     Dates: start: 20150311, end: 20150521
  6. DEXAMETHASONE. [Concomitant]
     Active Substance: DEXAMETHASONE
     Indication: PREMEDICATION
     Dosage: 6.6 MG, WEEKLY (1/W)
     Dates: start: 20150311, end: 20150507

REACTIONS (19)
  - Laryngeal oedema [Recovering/Resolving]
  - Blood creatinine increased [Unknown]
  - Hyponatraemia [Unknown]
  - Hyperkalaemia [Unknown]
  - Dysphonia [Unknown]
  - Alanine aminotransferase increased [Unknown]
  - Hypomagnesaemia [Unknown]
  - Stomatitis [Unknown]
  - Anaemia [Unknown]
  - Neutrophil count decreased [Unknown]
  - Dermatitis acneiform [Unknown]
  - Blood lactate dehydrogenase increased [Unknown]
  - Pharyngeal inflammation [Unknown]
  - Decreased appetite [Unknown]
  - White blood cell count decreased [Unknown]
  - Dysphagia [Unknown]
  - Radiation skin injury [Unknown]
  - Blood urea increased [Unknown]
  - Aspartate aminotransferase increased [Unknown]

NARRATIVE: CASE EVENT DATE: 20150318
